FAERS Safety Report 8161062-1 (Version None)
Quarter: 2012Q1

REPORT INFORMATION
  Report Type: 
  Country: None (occurrence: None)
  Receive Date: 20120224
  Receipt Date: 20120216
  Transmission Date: 20120608
  Serious: Yes (Other)
  Sender: FDA-Public Use
  Company Number: GB-BRISTOL-MYERS SQUIBB COMPANY-16406076

PATIENT
  Age: 25 Year
  Sex: Female

DRUGS (4)
  1. DIAZEPAM [Concomitant]
     Route: 065
  2. QUETIAPINE [Concomitant]
     Route: 065
  3. ABILIFY [Suspect]
     Indication: BIPOLAR DISORDER
     Route: 048
     Dates: start: 20111101, end: 20120101
  4. PAROXETINE [Concomitant]
     Route: 065

REACTIONS (3)
  - PSYCHOTIC DISORDER [None]
  - VOMITING [None]
  - NAUSEA [None]
